FAERS Safety Report 6433986-4 (Version None)
Quarter: 2009Q4

REPORT INFORMATION
  Report Type: 
  Country: None (occurrence: None)
  Receive Date: 20091110
  Receipt Date: 20091021
  Transmission Date: 20100525
  Serious: Yes (Other)
  Sender: FDA-Public Use
  Company Number: PHHY2009FR42700

PATIENT
  Sex: Male
  Weight: 65 kg

DRUGS (9)
  1. EXELON [Suspect]
     Indication: DEMENTIA ALZHEIMER'S TYPE
     Dosage: 9.5 MG, QD
     Route: 062
     Dates: start: 20090608, end: 20090909
  2. EBIXA [Concomitant]
  3. PLAVIX [Concomitant]
     Dosage: UNK
     Dates: start: 20000202
  4. SERMION [Concomitant]
     Dosage: 5
     Dates: start: 20000202
  5. BUFLOMEDIL [Concomitant]
     Dosage: 150
     Dates: start: 20000202
  6. AMLOR [Concomitant]
     Dosage: UNK
     Dates: start: 20000202
  7. ZOCOR [Concomitant]
     Dosage: 20
     Dates: start: 20000202
  8. ATACAND [Concomitant]
     Dosage: 4 MG, UNK
     Dates: start: 20000202
  9. DEDROGYL [Concomitant]
     Dosage: UNK
     Dates: start: 20000202

REACTIONS (3)
  - APPLICATION SITE ERYTHEMA [None]
  - APPLICATION SITE PRURITUS [None]
  - SKIN PLAQUE [None]
